FAERS Safety Report 7006431-8 (Version None)
Quarter: 2010Q3

REPORT INFORMATION
  Report Type: 
  Country: None (occurrence: None)
  Receive Date: 20100910
  Receipt Date: 20100903
  Transmission Date: 20110219
  Serious: Yes (Death, Life-Threatening, Hospitalization, Other)
  Sender: FDA-Public Use
  Company Number: CLOF-1000659

PATIENT
  Age: 56 Year
  Sex: Male
  Weight: 94 kg

DRUGS (8)
  1. EVOLTRA (CLOFARABINE) SOLUTION FOR INFUSION [Suspect]
     Indication: ACUTE MYELOID LEUKAEMIA
     Dosage: 33 MG, QOD, INTRAVENOUS
     Route: 042
     Dates: start: 20090709, end: 20090717
  2. CYTARABINE [Suspect]
     Indication: ACUTE MYELOID LEUKAEMIA
     Dosage: 220 MG, QD, CUTANEOUS
     Route: 003
     Dates: start: 20090708, end: 20090718
  3. IDARUBICIN HCL [Suspect]
     Indication: ACUTE MYELOID LEUKAEMIA
     Dosage: 22 MG, QOD, INTRAVENOUS
     Route: 042
     Dates: start: 20090708, end: 20090712
  4. CEFUROXIME [Concomitant]
  5. GENTAMYCIN-MP (GENTAMICIN SULFATE) [Concomitant]
  6. MESALAMINE [Concomitant]
  7. BUDESONIDE [Concomitant]
  8. PENTASA [Concomitant]

REACTIONS (11)
  - ATRIAL FIBRILLATION [None]
  - AURICULAR SWELLING [None]
  - CAECITIS [None]
  - CONTINUOUS HAEMODIAFILTRATION [None]
  - ENTEROCOCCAL SEPSIS [None]
  - GASTROINTESTINAL NECROSIS [None]
  - ILEUS [None]
  - MULTI-ORGAN FAILURE [None]
  - RENAL FAILURE [None]
  - RESPIRATORY FAILURE [None]
  - SEPTIC SHOCK [None]
